FAERS Safety Report 14946152 (Version 3)
Quarter: 2019Q4

REPORT INFORMATION
  Report Type: Spontaneous
  Country: JP (occurrence: JP)
  Receive Date: 20180529
  Receipt Date: 20191218
  Transmission Date: 20200122
  Serious: Yes (Death, Other)
  Sender: FDA-Public Use
  Company Number: JP-JNJFOC-20180514795

PATIENT
  Age: 80 Year
  Sex: Male

DRUGS (10)
  1. OXYCONTIN [Concomitant]
     Active Substance: OXYCODONE HYDROCHLORIDE
     Indication: CANCER PAIN
     Dosage: IN THE MORNING AND AFTERNOON
     Route: 048
     Dates: start: 20170411, end: 20180417
  2. CARBOCISTEINE [Concomitant]
     Active Substance: CARBOCYSTEINE
     Dosage: AFTER EACH MEAL
     Route: 048
  3. REBAMIPIDE [Concomitant]
     Active Substance: REBAMIPIDE
     Indication: GASTRIC ULCER HAEMORRHAGE
     Dosage: AFTER EACH MEAL
     Route: 048
     Dates: start: 20170401, end: 20180425
  4. GASTER [Concomitant]
     Active Substance: FAMOTIDINE
     Indication: GASTRIC ULCER HAEMORRHAGE
     Dosage: IN THE AFTERNOON
     Route: 048
     Dates: start: 20170411, end: 20180425
  5. FLIVAS [Concomitant]
     Active Substance: NAFTOPIDIL
     Indication: BENIGN PROSTATIC HYPERPLASIA
     Dosage: NAFTOPIDIL, IN THE MORNING
     Route: 048
     Dates: start: 20170411, end: 20180425
  6. GONAX [Concomitant]
     Active Substance: DEGARELIX
     Indication: HORMONE-REFRACTORY PROSTATE CANCER
     Route: 058
     Dates: start: 20170411, end: 20180313
  7. LEUPLIN [Concomitant]
     Active Substance: LEUPROLIDE ACETATE
     Indication: HORMONE-REFRACTORY PROSTATE CANCER
     Route: 065
     Dates: start: 20180410
  8. ZYTIGA [Suspect]
     Active Substance: ABIRATERONE ACETATE
     Indication: HORMONE-REFRACTORY PROSTATE CANCER
     Dosage: IN THE AFTERNOON
     Route: 048
     Dates: start: 20170425, end: 20180516
  9. FENTANYL CITRATE. [Concomitant]
     Active Substance: FENTANYL CITRATE
  10. PREDONINE [Concomitant]
     Active Substance: PREDNISOLONE
     Indication: HORMONE-REFRACTORY PROSTATE CANCER
     Dosage: IN THE MORNING AND AFTERNOON
     Route: 048
     Dates: start: 20170411, end: 20180425

REACTIONS (7)
  - Gastric ulcer haemorrhage [Unknown]
  - Pleural effusion [Unknown]
  - Chronic kidney disease [Unknown]
  - Prostate cancer [Fatal]
  - Faeces discoloured [Unknown]
  - Cardiac failure [Unknown]
  - Pneumonia [Unknown]

NARRATIVE: CASE EVENT DATE: 20180401
